FAERS Safety Report 9222941 (Version 2)
Quarter: 2013Q2

REPORT INFORMATION
  Report Type: Spontaneous
  Country: US (occurrence: US)
  Receive Date: 20130410
  Receipt Date: 20130507
  Transmission Date: 20140414
  Serious: Yes (Hospitalization)
  Sender: FDA-Public Use
  Company Number: US-ROCHE-1209919

PATIENT
  Sex: Female

DRUGS (7)
  1. ACTILYSE [Suspect]
     Indication: RENOVASCULAR HYPERTENSION
     Route: 065
  2. ACTILYSE [Suspect]
     Indication: THROMBOSIS
  3. CLONIDINE [Suspect]
     Indication: RENOVASCULAR HYPERTENSION
     Route: 065
  4. CLONIDINE [Suspect]
     Indication: THROMBOSIS
  5. HYDRALAZINE [Concomitant]
  6. AMLODIPINE [Concomitant]
  7. LABETALOL [Concomitant]

REACTIONS (4)
  - Drug ineffective [Recovered/Resolved]
  - Thrombosis in device [Recovered/Resolved]
  - Hypertension [Recovered/Resolved]
  - Renal failure [Recovered/Resolved]
